FAERS Safety Report 11934890 (Version 1)
Quarter: 2016Q1

REPORT INFORMATION
  Report Type: Spontaneous
  Country: US (occurrence: None)
  Receive Date: 20160120
  Receipt Date: 20160120
  Transmission Date: 20160526
  Serious: No
  Sender: FDA-Public Use
  Company Number: None

PATIENT
  Age: 16 Year
  Sex: Female
  Weight: 54.43 kg

DRUGS (2)
  1. ALEVE [Concomitant]
     Active Substance: NAPROXEN SODIUM
  2. MUCINEX [Suspect]
     Active Substance: GUAIFENESIN
     Indication: PULMONARY CONGESTION
     Dosage: 2 PILLS EVER 4-6 HOURS
     Route: 048

REACTIONS (12)
  - Vision blurred [None]
  - Oropharyngeal pain [None]
  - Dry mouth [None]
  - Ear pain [None]
  - Pain [None]
  - Breast tenderness [None]
  - Dysstasia [None]
  - Epistaxis [None]
  - Pyrexia [None]
  - Nausea [None]
  - Fatigue [None]
  - Neck pain [None]
